FAERS Safety Report 5700282-X (Version None)
Quarter: 2008Q2

REPORT INFORMATION
  Report Type: 
  Country: None (occurrence: None)
  Receive Date: 20080410
  Receipt Date: 20080327
  Transmission Date: 20081010
  Serious: Yes (Congenital Anomaly)
  Sender: FDA-Public Use
  Company Number: A0685055A

PATIENT
  Sex: Female

DRUGS (3)
  1. PAXIL CR [Suspect]
     Indication: DEPRESSION
     Dates: start: 20020301, end: 20050701
  2. PAXIL [Suspect]
     Indication: ANXIETY
     Dates: start: 20020301, end: 20021201
  3. VITAMIN TAB [Concomitant]

REACTIONS (2)
  - DRUG EXPOSURE DURING PREGNANCY [None]
  - PATENT DUCTUS ARTERIOSUS [None]
